FAERS Safety Report 24757601 (Version 1)
Quarter: 2024Q4

REPORT INFORMATION
  Report Type: Spontaneous
  Country: CH (occurrence: CA)
  Receive Date: 20241220
  Receipt Date: 20241220
  Transmission Date: 20250115
  Serious: Yes (Other)
  Sender: Kenvue
  Company Number: CH-JOHNSON + JOHNSON CONSUMER SERVICES EAME-20241203442

PATIENT

DRUGS (2)
  1. IBUPROFEN [Suspect]
     Active Substance: IBUPROFEN
     Indication: Drug provocation test
     Route: 065
  2. CELECOXIB [Concomitant]
     Active Substance: CELECOXIB
     Indication: Drug provocation test
     Route: 065

REACTIONS (2)
  - Off label use [Unknown]
  - Anaphylactic reaction [Unknown]
